FAERS Safety Report 15651010 (Version 3)
Quarter: 2018Q4

REPORT INFORMATION
  Report Type: Spontaneous
  Country: JP (occurrence: JP)
  Receive Date: 20181123
  Receipt Date: 20181221
  Transmission Date: 20190205
  Serious: Yes (Hospitalization)
  Sender: FDA-Public Use
  Company Number: JP-TEVA-2018-JP-979930

PATIENT
  Age: 6 Decade
  Sex: Male

DRUGS (9)
  1. STALEVO [Concomitant]
     Active Substance: CARBIDOPA\ENTACAPONE\LEVODOPA
     Route: 065
  2. NEUPRO [Concomitant]
     Active Substance: ROTIGOTINE
  3. SILECE [Concomitant]
     Active Substance: FLUNITRAZEPAM
  4. NOURIAST [Concomitant]
     Active Substance: ISTRADEFYLLINE
  5. SEROQUEL [Concomitant]
     Active Substance: QUETIAPINE FUMARATE
  6. AZILECT [Suspect]
     Active Substance: RASAGILINE MESYLATE
     Indication: PARKINSON^S DISEASE
     Dosage: 1 MILLIGRAM DAILY;
     Route: 048
     Dates: end: 20181214
  7. APOKYN [Concomitant]
     Active Substance: APOMORPHINE HYDROCHLORIDE
  8. REQUIP [Concomitant]
     Active Substance: ROPINIROLE HYDROCHLORIDE
  9. TRERIEF [Concomitant]
     Active Substance: ZONISAMIDE

REACTIONS (1)
  - Parkinson^s disease [Not Recovered/Not Resolved]
